FAERS Safety Report 9405181 (Version 1)
Quarter: 2013Q3

REPORT INFORMATION
  Report Type: Spontaneous
  Country: US (occurrence: US)
  Receive Date: 20130717
  Receipt Date: 20130717
  Transmission Date: 20140515
  Serious: No
  Sender: FDA-Public Use
  Company Number: US-009507513-1307USA007849

PATIENT
  Age: 56 Year
  Sex: Male

DRUGS (1)
  1. JANUVIA [Suspect]
     Dosage: UNK
     Dates: end: 20121109

REACTIONS (1)
  - Diabetes mellitus inadequate control [Unknown]
